FAERS Safety Report 5365823-3 (Version None)
Quarter: 2007Q2

REPORT INFORMATION
  Report Type: 
  Country: None (occurrence: None)
  Receive Date: 20070621
  Receipt Date: 20070607
  Transmission Date: 20071010
  Serious: Yes (Other)
  Sender: FDA-Public Use
  Company Number: US-SHR-US-2007-021484

PATIENT
  Age: 39 Year
  Sex: Female

DRUGS (1)
  1. BETASERON [Suspect]
     Indication: RELAPSING-REMITTING MULTIPLE SCLEROSIS
     Route: 058
     Dates: start: 20070304, end: 20070507

REACTIONS (3)
  - CHEST PAIN [None]
  - DIZZINESS [None]
  - LOSS OF CONSCIOUSNESS [None]
